FAERS Safety Report 8910449 (Version 6)
Quarter: 2017Q4

REPORT INFORMATION
  Report Type: Spontaneous
  Country: US (occurrence: US)
  Receive Date: 20121114
  Receipt Date: 20171115
  Transmission Date: 20180321
  Serious: Yes (Hospitalization, Disabling, Other)
  Sender: FDA-Public Use
  Company Number: US-009507513-1211USA005788

PATIENT
  Sex: Female
  Weight: 61.22 kg

DRUGS (4)
  1. ALENDRONATE SODIUM. [Suspect]
     Active Substance: ALENDRONATE SODIUM
     Dosage: 70 MG, QW
     Route: 048
     Dates: start: 20071104, end: 20081014
  2. FOSAMAX [Suspect]
     Active Substance: ALENDRONATE SODIUM
     Indication: OSTEOPOROSIS
     Dosage: 70MG, QW
     Route: 048
     Dates: start: 2003, end: 201112
  3. ALENDRONATE SODIUM. [Suspect]
     Active Substance: ALENDRONATE SODIUM
     Dosage: 70 MG, QW
     Route: 048
     Dates: start: 20110222, end: 20111207
  4. FOSAMAX PLUS D [Suspect]
     Active Substance: ALENDRONATE SODIUM\CHOLECALCIFEROL
     Indication: OSTEOPOROSIS
     Dosage: 70 MG, QW
     Route: 048
     Dates: start: 2003, end: 201112

REACTIONS (35)
  - Femur fracture [Not Recovered/Not Resolved]
  - Haemorrhagic anaemia [Unknown]
  - Medical device removal [Unknown]
  - Impaired healing [Unknown]
  - Hypertension [Unknown]
  - Osteoarthritis [Unknown]
  - Osteopenia [Unknown]
  - Cataract [Unknown]
  - Constipation [Unknown]
  - Blood phosphorus decreased [Unknown]
  - Acute respiratory failure [Unknown]
  - Hypertension [Unknown]
  - Rib fracture [Unknown]
  - Right ventricular failure [Unknown]
  - Anaemia postoperative [Unknown]
  - Hypercholesterolaemia [Unknown]
  - Abdominal operation [Unknown]
  - Intramedullary rod insertion [Unknown]
  - Open reduction of fracture [Not Recovered/Not Resolved]
  - Rotator cuff syndrome [Unknown]
  - Fall [Unknown]
  - Hysterectomy [Unknown]
  - Thrombocytopenia [Unknown]
  - Pyrexia [Unknown]
  - Abdominal discomfort [Recovered/Resolved]
  - Pulmonary oedema [Unknown]
  - Nausea [Unknown]
  - Bone graft [Unknown]
  - Shock haemorrhagic [Unknown]
  - Fracture nonunion [Unknown]
  - Electrolyte imbalance [Unknown]
  - Vomiting [Unknown]
  - Rotator cuff repair [Unknown]
  - Arthritis [Unknown]
  - Hypomagnesaemia [Unknown]

NARRATIVE: CASE EVENT DATE: 20050720
